FAERS Safety Report 17145679 (Version 2)
Quarter: 2023Q4

REPORT INFORMATION
  Report Type: Other
  Country: RO (occurrence: RO)
  Receive Date: 20191212
  Receipt Date: 20231024
  Transmission Date: 20240110
  Serious: Yes (Other)
  Sender: FDA-Public Use
  Company Number: RO-ALVOGEN-2019-ALVOGEN-101963

PATIENT
  Age: 63 Year

DRUGS (1)
  1. CAPECITABINE [Suspect]
     Active Substance: CAPECITABINE
     Indication: Rectal adenocarcinoma
     Dosage: 500MG X 7PILLS/DAY FOR 14 DAYS
     Route: 048

REACTIONS (2)
  - Arteriospasm coronary [Recovered/Resolved]
  - Cardiotoxicity [Recovered/Resolved]
